FAERS Safety Report 6957659-4 (Version None)
Quarter: 2010Q3

REPORT INFORMATION
  Report Type: 
  Country: None (occurrence: None)
  Receive Date: 20100831
  Receipt Date: 20100816
  Transmission Date: 20110219
  Serious: Yes (Hospitalization)
  Sender: FDA-Public Use
  Company Number: PHHY2010US54675

PATIENT
  Sex: Male

DRUGS (3)
  1. EXFORGE [Suspect]
     Dosage: 02 TABLETS DAILY
     Route: 048
  2. EXFORGE [Suspect]
     Dosage: 01 TABLET DAILY
     Route: 048
  3. LYRICA [Concomitant]

REACTIONS (11)
  - BLOOD PRESSURE DECREASED [None]
  - DEHYDRATION [None]
  - DIZZINESS [None]
  - FALL [None]
  - FATIGUE [None]
  - HEADACHE [None]
  - LOSS OF CONSCIOUSNESS [None]
  - MEMORY IMPAIRMENT [None]
  - RENAL FAILURE [None]
  - URINE ODOUR ABNORMAL [None]
  - VIRAL INFECTION [None]
